FAERS Safety Report 7042943-9 (Version None)
Quarter: 2010Q4

REPORT INFORMATION
  Report Type: 
  Country: None (occurrence: None)
  Receive Date: 20101013
  Receipt Date: 20100930
  Transmission Date: 20110411
  Serious: Yes (Hospitalization)
  Sender: FDA-Public Use
  Company Number: US-CELGENEUS-163-21880-10100182

PATIENT
  Sex: Female
  Weight: 83.6 kg

DRUGS (5)
  1. REVLIMID [Suspect]
     Route: 048
  2. REVLIMID [Suspect]
     Route: 048
     Dates: start: 20100923
  3. VIDAZA [Suspect]
     Route: 058
  4. VIDAZA [Suspect]
     Route: 058
     Dates: start: 20100923
  5. NORMAL SALINE [Concomitant]
     Indication: PRODUCT USED FOR UNKNOWN INDICATION
     Dosage: 1 LITER
     Route: 065

REACTIONS (1)
  - SYNCOPE [None]
